FAERS Safety Report 6284323-X (Version None)
Quarter: 2009Q3

REPORT INFORMATION
  Report Type: 
  Country: None (occurrence: None)
  Receive Date: 20090727
  Receipt Date: 20090716
  Transmission Date: 20100115
  Serious: Yes (Hospitalization, Other)
  Sender: FDA-Public Use
  Company Number: US-AMGEN-QUU354502

PATIENT
  Sex: Female
  Weight: 67.6 kg

DRUGS (9)
  1. ENBREL [Suspect]
     Indication: PSORIASIS
     Route: 058
     Dates: start: 20060101, end: 20090526
  2. LEVOTHYROXINE SODIUM [Concomitant]
  3. NEURONTIN [Concomitant]
  4. TOPROL-XL [Concomitant]
  5. ZOFRAN [Concomitant]
  6. ANTIVERT [Concomitant]
  7. OXYCODONE [Concomitant]
  8. HUMULIN 70/30 [Concomitant]
  9. HUMULIN R [Concomitant]

REACTIONS (6)
  - ANAEMIA [None]
  - DIVERTICULITIS [None]
  - STAPHYLOCOCCAL INFECTION [None]
  - STENT PLACEMENT [None]
  - THYROID DISORDER [None]
  - WOUND [None]
